FAERS Safety Report 25508664 (Version 1)
Quarter: 2025Q3

REPORT INFORMATION
  Report Type: Report from Study
  Country: US (occurrence: US)
  Receive Date: 20250703
  Receipt Date: 20250703
  Transmission Date: 20251021
  Serious: Yes (Death)
  Sender: DAIICHI
  Company Number: US-DSJP-DS-2025-141115-US

PATIENT
  Age: 46 Year
  Sex: Female

DRUGS (2)
  1. ENHERTU [Suspect]
     Active Substance: FAM-TRASTUZUMAB DERUXTECAN-NXKI
     Indication: Product used for unknown indication
     Dosage: 380 MG, ONCE EVERY 3 WK
     Route: 042
     Dates: start: 20250403, end: 20250403
  2. ENHERTU [Suspect]
     Active Substance: FAM-TRASTUZUMAB DERUXTECAN-NXKI
     Dosage: 380 MG, OVER 90 MINUTES, ONCE EVERY 3 WK
     Route: 042
     Dates: start: 20250408, end: 20250621

REACTIONS (2)
  - Death [Fatal]
  - Asthenia [Recovered/Resolved]

NARRATIVE: CASE EVENT DATE: 20250514
